FAERS Safety Report 9558813 (Version 2)
Quarter: 2013Q3

REPORT INFORMATION
  Report Type: Spontaneous
  Country: AE (occurrence: AE)
  Receive Date: 20130926
  Receipt Date: 20130926
  Transmission Date: 20140515
  Serious: Yes (Other)
  Sender: FDA-Public Use
  Company Number: AE-ELI_LILLY_AND_COMPANY-AE201306004941

PATIENT
  Age: 29 Year
  Sex: Female

DRUGS (4)
  1. HUMALOG 50% LISPRO, 50% NPL [Suspect]
     Indication: GESTATIONAL DIABETES
     Dosage: 16 U, TID
     Route: 058
     Dates: start: 20130602, end: 20130628
  2. FOLIC ACID [Concomitant]
     Dosage: 5 MG, QD
     Dates: start: 20130529, end: 20130628
  3. FOLIC ACID [Concomitant]
     Dosage: UNK
  4. DUPHASTON [Concomitant]
     Dosage: 10 MG, BID
     Dates: start: 20130529, end: 20130623

REACTIONS (3)
  - Abortion spontaneous [Recovered/Resolved]
  - Blood glucose increased [Not Recovered/Not Resolved]
  - Maternal exposure during pregnancy [Recovered/Resolved]
